FAERS Safety Report 20039070 (Version 1)
Quarter: 2021Q4

REPORT INFORMATION
  Report Type: Spontaneous
  Country: IT (occurrence: IT)
  Receive Date: 20211105
  Receipt Date: 20211105
  Transmission Date: 20220303
  Serious: Yes (Other)
  Sender: FDA-Public Use
  Company Number: None

PATIENT
  Age: 75 Year
  Sex: Male

DRUGS (5)
  1. IRINOTECAN HYDROCHLORIDE [Suspect]
     Active Substance: IRINOTECAN HYDROCHLORIDE
     Indication: Pancreatic carcinoma
     Dosage: 280.8 MG, CYCLIC
     Route: 042
     Dates: start: 20210821
  2. LEVOLEUCOVORIN CALCIUM [Suspect]
     Active Substance: LEVOLEUCOVORIN CALCIUM
     Indication: Pancreatic carcinoma
     Dosage: 312 MG, CYCLIC
     Route: 042
     Dates: start: 20210621
  3. OXALIPLATIN [Suspect]
     Active Substance: OXALIPLATIN
     Indication: Pancreatic carcinoma
     Dosage: 136.6 MG, CYCLIC
     Route: 042
     Dates: start: 20210621
  4. FLUOROURACIL [Suspect]
     Active Substance: FLUOROURACIL
     Indication: Pancreatic carcinoma
     Dosage: 3744 MG, CYCLIC
     Route: 041
     Dates: start: 20210621
  5. FLUOROURACIL [Suspect]
     Active Substance: FLUOROURACIL
     Dosage: 624 MG, CYCLIC
     Route: 040
     Dates: start: 20210621

REACTIONS (1)
  - Sciatic nerve palsy [Not Recovered/Not Resolved]

NARRATIVE: CASE EVENT DATE: 20211015
